FAERS Safety Report 5454804-7 (Version None)
Quarter: 2007Q3

REPORT INFORMATION
  Report Type: 
  Country: None (occurrence: None)
  Receive Date: 20070917
  Receipt Date: 20070904
  Transmission Date: 20080115
  Serious: No
  Sender: FDA-Public Use
  Company Number: US-BOEHRINGER INGELHEIM PHARMACEUTICALS, INC.-2007-BP-20525BP

PATIENT
  Age: 82 Year
  Sex: Male

DRUGS (1)
  1. SPIRIVA [Suspect]
     Indication: EMPHYSEMA
     Route: 055
     Dates: start: 20070801

REACTIONS (4)
  - DRUG ADMINISTRATION ERROR [None]
  - DRUG EFFECT DECREASED [None]
  - DYSPNOEA [None]
  - PRODUCTIVE COUGH [None]
